FAERS Safety Report 15262274 (Version 1)
Quarter: 2018Q3

REPORT INFORMATION
  Report Type: Spontaneous
  Country: US (occurrence: US)
  Receive Date: 20180720
  Receipt Date: 20180720
  Transmission Date: 20181010
  Serious: No
  Sender: FDA-Public Use
  Company Number: None

PATIENT
  Age: 63 Year
  Sex: Female

DRUGS (1)
  1. HARVONI [Suspect]
     Active Substance: LEDIPASVIR\SOFOSBUVIR
     Route: 048
     Dates: start: 20180614, end: 20180720

REACTIONS (3)
  - Nephrolithiasis [None]
  - Urinary tract infection [None]
  - Dysuria [None]

NARRATIVE: CASE EVENT DATE: 20180720
